FAERS Safety Report 17414234 (Version 12)
Quarter: 2020Q3

REPORT INFORMATION
  Report Type: Report from Study
  Country: JP (occurrence: JP)
  Receive Date: 20200213
  Receipt Date: 20200821
  Transmission Date: 20201102
  Serious: Yes (Hospitalization)
  Sender: FDA-Public Use
  Company Number: JP-ROCHE-2542516

PATIENT
  Age: 57 Year
  Sex: Male
  Weight: 62 kg

DRUGS (57)
  1. OBINUTUZUMAB. [Suspect]
     Active Substance: OBINUTUZUMAB
     Indication: B-CELL LYMPHOMA
     Dosage: 1000 MG IV INFUSION, ADMINISTERED ON DAY 1, 8 AND 15 DURING CYCLE 1, AND ON DAY 1 OF SUBSEQUENT CYCL
     Route: 042
     Dates: start: 20191106
  2. BENDAMUSTINE [Suspect]
     Active Substance: BENDAMUSTINE
     Indication: B-CELL LYMPHOMA
     Dosage: ADMINISTERED ON DAYS 1 AND 2 FOR CYCLES 1?6 AT A DOSE OF 90 MG/M2/DAY, FOR SIX 28?DAY CYCLES.?DATE O
     Route: 042
     Dates: start: 20191107
  3. VONOPRAZAN FUMARATE [Concomitant]
     Active Substance: VONOPRAZAN FUMARATE
     Dates: start: 20200207
  4. METHYLPREDNISOLONE SODIUM SUCCINATE. [Concomitant]
     Active Substance: METHYLPREDNISOLONE SODIUM SUCCINATE
     Dosage: CYCLE 2 DAY 1?START TIME: 10:00?END TIME: 10:15
     Route: 042
     Dates: start: 20191203, end: 20191203
  5. METHYLPREDNISOLONE SODIUM SUCCINATE. [Concomitant]
     Active Substance: METHYLPREDNISOLONE SODIUM SUCCINATE
     Dosage: MAINTENANCE WEEK 01?START TIME:13:13?END TIME:13:30
     Route: 042
     Dates: start: 20200616
  6. VITAMEDIN (JAPAN) [Concomitant]
     Dates: start: 20200202, end: 20200206
  7. MAGNESIUM OXIDE. [Concomitant]
     Active Substance: MAGNESIUM OXIDE
     Dates: start: 20200226
  8. ACETAMINOPHEN. [Concomitant]
     Active Substance: ACETAMINOPHEN
     Dosage: CYCLE 1 DAY 15?START TIME: 10:40?END TIME: 10:40
     Route: 048
     Dates: start: 20191119, end: 20191119
  9. DIPHENHYDRAMINE HYDROCHLORIDE. [Concomitant]
     Active Substance: DIPHENHYDRAMINE HYDROCHLORIDE
     Dosage: CYCLE 1 DAY 8?START TIME: 11:15?END TIME: 11:15
     Route: 048
     Dates: start: 20191113, end: 20191113
  10. DIPHENHYDRAMINE HYDROCHLORIDE. [Concomitant]
     Active Substance: DIPHENHYDRAMINE HYDROCHLORIDE
     Dosage: CYCLE 1 DAY 15?START TIME: 10:40?END TIME: 10:40
     Route: 048
     Dates: start: 20191119, end: 20191119
  11. LANSOPRAZOLE. [Concomitant]
     Active Substance: LANSOPRAZOLE
     Indication: GASTRITIS PROPHYLAXIS
     Dates: start: 20200131
  12. RIVAROXABAN [Suspect]
     Active Substance: RIVAROXABAN
     Indication: PULMONARY EMBOLISM
     Route: 065
     Dates: start: 20191114, end: 20200131
  13. APREPITANT. [Concomitant]
     Active Substance: APREPITANT
     Dates: start: 20200226, end: 20200227
  14. ACICLOVIR [Concomitant]
     Active Substance: ACYCLOVIR
     Dates: start: 20191106, end: 20200131
  15. PALONOSETRON HYDROCHLORIDE. [Concomitant]
     Active Substance: PALONOSETRON HYDROCHLORIDE
     Dates: start: 20191203, end: 20191203
  16. PALONOSETRON HYDROCHLORIDE. [Concomitant]
     Active Substance: PALONOSETRON HYDROCHLORIDE
     Dates: start: 20200225, end: 20200225
  17. SULFAMETHOXAZOLE/TRIMETHOPRIM [Concomitant]
     Active Substance: SULFAMETHOXAZOLE\TRIMETHOPRIM
     Dates: start: 20200207
  18. ACETAMINOPHEN. [Concomitant]
     Active Substance: ACETAMINOPHEN
     Dosage: START TIME: 10:36?STOP TIME: 10:36?MAINTEMANCE WEEK 09
     Route: 048
     Dates: start: 20200811, end: 20200811
  19. DIPHENHYDRAMINE HYDROCHLORIDE. [Concomitant]
     Active Substance: DIPHENHYDRAMINE HYDROCHLORIDE
     Dosage: START TIME: 10:36 ?STOP TIME: 10:36?MAINTENANCE WEEK 09
     Route: 048
     Dates: start: 20200811, end: 20200811
  20. LENOGRASTIM [Concomitant]
     Active Substance: LENOGRASTIM
     Indication: NEUTROPHIL COUNT DECREASED
     Dates: start: 20200212, end: 20200213
  21. LENOGRASTIM [Concomitant]
     Active Substance: LENOGRASTIM
     Dates: start: 20191219, end: 20191219
  22. APREPITANT. [Concomitant]
     Active Substance: APREPITANT
     Dates: start: 20200107, end: 20200107
  23. VONOPRAZAN FUMARATE [Concomitant]
     Active Substance: VONOPRAZAN FUMARATE
     Dates: start: 20191106
  24. LEVOFLOXACIN HEMIHYDRATE [Concomitant]
     Active Substance: LEVOFLOXACIN
     Dates: start: 20191217, end: 20191220
  25. BETAMETHASONE BUTYRATE PROPIONATE [Concomitant]
     Active Substance: BETAMETHASONE BUTYRATE PROPIONATE
     Dates: start: 20200301
  26. DIPHENHYDRAMINE HYDROCHLORIDE. [Concomitant]
     Active Substance: DIPHENHYDRAMINE HYDROCHLORIDE
     Dosage: CYCLE 3 DAY 1?START TIME: 13:37?END TIME: 13:37
     Route: 048
     Dates: start: 20200107, end: 20200107
  27. LENOGRASTIM [Concomitant]
     Active Substance: LENOGRASTIM
     Dates: start: 20200218, end: 20200221
  28. APREPITANT. [Concomitant]
     Active Substance: APREPITANT
     Dates: start: 20200421, end: 20200421
  29. DIPHENHYDRAMINE HYDROCHLORIDE. [Concomitant]
     Active Substance: DIPHENHYDRAMINE HYDROCHLORIDE
     Dosage: MAINTENANCE WEEK 01?START TIME:12:54?END TIME:12:54
     Route: 048
     Dates: start: 20200616
  30. APREPITANT. [Concomitant]
     Active Substance: APREPITANT
     Dates: start: 20191108, end: 20191108
  31. APREPITANT. [Concomitant]
     Active Substance: APREPITANT
     Dates: start: 20191203, end: 20191203
  32. APREPITANT. [Concomitant]
     Active Substance: APREPITANT
     Dates: start: 20191204, end: 20191204
  33. APREPITANT. [Concomitant]
     Active Substance: APREPITANT
     Dates: start: 20200324, end: 20200324
  34. ACICLOVIR [Concomitant]
     Active Substance: ACYCLOVIR
     Dates: start: 20200207
  35. SULFAMETHOXAZOLE/TRIMETHOPRIM [Concomitant]
     Active Substance: SULFAMETHOXAZOLE\TRIMETHOPRIM
     Dates: start: 20191106
  36. ACETAMINOPHEN. [Concomitant]
     Active Substance: ACETAMINOPHEN
     Dosage: CYCLE 4 DAY 1?START TIME: 10:59?END TIME: 10:59
     Route: 048
     Dates: start: 20200225, end: 20200225
  37. DIPHENHYDRAMINE HYDROCHLORIDE. [Concomitant]
     Active Substance: DIPHENHYDRAMINE HYDROCHLORIDE
     Dosage: CYCLE 2 DAY 1?START TIME: 10:51?END TIME: 10:51
     Route: 048
     Dates: start: 20191203, end: 20191203
  38. PEGFILGRASTIM [Concomitant]
     Active Substance: PEGFILGRASTIM
     Dates: start: 20200424, end: 20200424
  39. ETHYL ICOSAPENTATE [Concomitant]
     Active Substance: ICOSAPENT ETHYL
     Indication: DYSLIPIDAEMIA
     Dates: end: 20200131
  40. APREPITANT. [Concomitant]
     Active Substance: APREPITANT
     Dates: start: 20200107, end: 20200107
  41. METOCLOPRAMIDE. [Concomitant]
     Active Substance: METOCLOPRAMIDE
     Dates: start: 20191110
  42. PALONOSETRON HYDROCHLORIDE. [Concomitant]
     Active Substance: PALONOSETRON HYDROCHLORIDE
     Dates: start: 20191107, end: 20191107
  43. BETAMETHASONE BUTYRATE PROPIONATE [Concomitant]
     Active Substance: BETAMETHASONE BUTYRATE PROPIONATE
     Indication: VASCULITIS
     Dates: start: 20200108
  44. ACETAMINOPHEN. [Concomitant]
     Active Substance: ACETAMINOPHEN
     Indication: PREMEDICATION
     Dosage: CYCLE 1 DAY 1?START TIME: 11:45?END TIME: 11:45
     Route: 048
     Dates: start: 20191106, end: 20191106
  45. ACETAMINOPHEN. [Concomitant]
     Active Substance: ACETAMINOPHEN
     Dosage: CYCLE 2 DAY 1?START TIME: 10:15?END TIME: 10:15
     Route: 048
     Dates: start: 20191203, end: 20191203
  46. ACETAMINOPHEN. [Concomitant]
     Active Substance: ACETAMINOPHEN
     Dosage: CYCLE 3 DAY 1?START TIME: 13:37?END TIME: 13:37
     Route: 048
     Dates: start: 20200107, end: 20200107
  47. DIPHENHYDRAMINE HYDROCHLORIDE. [Concomitant]
     Active Substance: DIPHENHYDRAMINE HYDROCHLORIDE
     Indication: PREMEDICATION
     Dosage: CYCLE 1 DAY 1?START TIME: 11:45?END TIME: 11:45
     Route: 048
     Dates: start: 20191106, end: 20191106
  48. DIPHENHYDRAMINE HYDROCHLORIDE. [Concomitant]
     Active Substance: DIPHENHYDRAMINE HYDROCHLORIDE
     Dosage: CYCLE 4 DAY 1?START TIME: 10:59?END TIME: 10:59
     Route: 048
     Dates: start: 20200225, end: 20200225
  49. METHYLPREDNISOLONE SODIUM SUCCINATE. [Concomitant]
     Active Substance: METHYLPREDNISOLONE SODIUM SUCCINATE
     Dosage: CYCLE 3 DAY 1?START TIME: 14:10
     Route: 042
     Dates: start: 20200107, end: 20200107
  50. METHYLPREDNISOLONE SODIUM SUCCINATE. [Concomitant]
     Active Substance: METHYLPREDNISOLONE SODIUM SUCCINATE
     Dosage: START TIME: 11:10?STOP TIME: 11:15?MAINTENANCE WEEK 09
     Route: 042
     Dates: start: 20200811, end: 20200811
  51. APREPITANT. [Concomitant]
     Active Substance: APREPITANT
     Dates: start: 20191107, end: 20191107
  52. APREPITANT. [Concomitant]
     Active Substance: APREPITANT
     Dates: start: 20200108, end: 20200108
  53. L?CARBOCISTEINE [Concomitant]
     Active Substance: CARBOCYSTEINE
     Dates: start: 20200115
  54. ACETAMINOPHEN. [Concomitant]
     Active Substance: ACETAMINOPHEN
     Dosage: CYCLE 1 DAY 8?START TIME: 11:15?END TIME: 11:15
     Route: 048
     Dates: start: 20191113, end: 20191113
  55. ACETAMINOPHEN. [Concomitant]
     Active Substance: ACETAMINOPHEN
     Dosage: MAINTENANCE WEEK 01?START TIME:12:54?END TIME:12:54
     Route: 048
     Dates: start: 20200616
  56. METHYLPREDNISOLONE SODIUM SUCCINATE. [Concomitant]
     Active Substance: METHYLPREDNISOLONE SODIUM SUCCINATE
     Indication: PREMEDICATION
     Dosage: CYCLE 1 DAY 1?START TIME: 10:55?END TIME: 11:15
     Route: 042
     Dates: start: 20191106, end: 20191106
  57. PEGFILGRASTIM [Concomitant]
     Active Substance: PEGFILGRASTIM
     Indication: PROPHYLAXIS
     Dates: start: 20200228, end: 20200228

REACTIONS (1)
  - Lower gastrointestinal haemorrhage [Recovered/Resolved]

NARRATIVE: CASE EVENT DATE: 20200131
